FAERS Safety Report 8383966-7 (Version None)
Quarter: 2012Q2

REPORT INFORMATION
  Report Type: 
  Country: None (occurrence: None)
  Receive Date: 20120524
  Receipt Date: 20120522
  Transmission Date: 20120825
  Serious: Yes (Death)
  Sender: FDA-Public Use
  Company Number: US-ROCHE-1067324

PATIENT
  Sex: Male
  Weight: 82.628 kg

DRUGS (7)
  1. AVASTIN [Suspect]
     Route: 042
     Dates: start: 20120320, end: 20120320
  2. AVASTIN [Suspect]
     Indication: ADENOCARCINOMA
     Dosage: WRONG DOSE
     Route: 042
     Dates: start: 20120206
  3. AVASTIN [Suspect]
     Route: 042
     Dates: start: 20120213
  4. CAMPTOSAR [Concomitant]
     Indication: ADENOCARCINOMA
     Route: 042
     Dates: start: 20120206
  5. LEUCOVORIN CALCIUM [Concomitant]
     Indication: ADENOCARCINOMA
     Route: 042
     Dates: end: 20120206
  6. AVASTIN [Suspect]
     Route: 042
     Dates: start: 20120306
  7. CAMPTOSAR [Concomitant]
     Route: 042
     Dates: start: 20120227, end: 20120306

REACTIONS (1)
  - DEATH [None]
